FAERS Safety Report 16954735 (Version 2)
Quarter: 2019Q4

REPORT INFORMATION
  Report Type: Spontaneous
  Country: US (occurrence: US)
  Receive Date: 20191024
  Receipt Date: 20191029
  Transmission Date: 20200122
  Serious: No
  Sender: FDA-Public Use
  Company Number: US-JNJFOC-20191014926

PATIENT
  Age: 16 Year
  Sex: Female

DRUGS (3)
  1. CHILDRENS TYLENOL [Suspect]
     Active Substance: ACETAMINOPHEN
     Indication: PHARYNGITIS STREPTOCOCCAL
     Route: 048
  2. CHILDRENS TYLENOL [Suspect]
     Active Substance: ACETAMINOPHEN
     Indication: INFECTIOUS MONONUCLEOSIS
  3. CHILDRENS TYLENOL [Suspect]
     Active Substance: ACETAMINOPHEN
     Indication: TONSILLITIS

REACTIONS (1)
  - Product administered to patient of inappropriate age [Unknown]
